FAERS Safety Report 9632212 (Version 2)
Quarter: 2013Q4

REPORT INFORMATION
  Report Type: Spontaneous
  Country: US (occurrence: US)
  Receive Date: 20131018
  Receipt Date: 20131018
  Transmission Date: 20140711
  Serious: Yes (Hospitalization, Other)
  Sender: FDA-Public Use
  Company Number: US-SA-FABR-1003370

PATIENT
  Age: 42 Year
  Sex: Male

DRUGS (6)
  1. FABRAZYME [Suspect]
     Indication: FABRY^S DISEASE
     Dosage: 70 MG, Q2W
     Route: 042
     Dates: start: 20030722
  2. FABRAZYME [Suspect]
     Indication: FABRY^S DISEASE
     Dosage: 70 MG, Q2W
     Route: 042
     Dates: start: 20030722
  3. FUROSEMIDE [Concomitant]
     Dosage: UNK
  4. PREDNISONE [Concomitant]
     Indication: PREMEDICATION
     Dosage: UNK
  5. DIPHENHYDRAMINE [Concomitant]
     Indication: PREMEDICATION
     Dosage: UNK
     Route: 042
  6. PARACETAMOL [Concomitant]
     Indication: PREMEDICATION
     Dosage: UNK

REACTIONS (4)
  - Endocarditis [Unknown]
  - Pulmonary valve disease [Unknown]
  - Cardiac pacemaker insertion [Unknown]
  - Oedema [Unknown]
